FAERS Safety Report 8335584-4 (Version None)
Quarter: 2012Q2

REPORT INFORMATION
  Report Type: 
  Country: None (occurrence: None)
  Receive Date: 20120504
  Receipt Date: 20120501
  Transmission Date: 20120825
  Serious: Yes (Other)
  Sender: FDA-Public Use
  Company Number: US-AMGEN-USASP2012027644

PATIENT
  Sex: Female

DRUGS (4)
  1. MULTIVITAMIN                       /00097801/ [Concomitant]
  2. TUMS                               /00193601/ [Concomitant]
  3. VITAMIN D [Concomitant]
  4. PROLIA [Suspect]
     Indication: OSTEOPENIA
     Dosage: UNK UNK, Q6MO
     Dates: start: 20110601, end: 20120101

REACTIONS (2)
  - BONE LOSS [None]
  - TOOTH ABSCESS [None]
